FAERS Safety Report 26035816 (Version 3)
Quarter: 2025Q4

REPORT INFORMATION
  Report Type: Spontaneous
  Country: KE (occurrence: KE)
  Receive Date: 20251112
  Receipt Date: 20251217
  Transmission Date: 20260118
  Serious: Yes (Hospitalization, Other)
  Sender: BRISTOL-MYERS SQUIBB COMPANY
  Company Number: KE-BRISTOL-MYERS SQUIBB COMPANY-2025-152251

PATIENT
  Age: 74 Year
  Sex: Male

DRUGS (5)
  1. OPDIVO [Suspect]
     Active Substance: NIVOLUMAB
     Indication: Gastric cancer
     Dosage: 1ST DOSE
  2. OPDIVO [Suspect]
     Active Substance: NIVOLUMAB
     Dosage: 2ND DOSE
  3. OPDIVO [Suspect]
     Active Substance: NIVOLUMAB
     Dosage: 3RD  DOSE
  4. OPDIVO [Suspect]
     Active Substance: NIVOLUMAB
     Dosage: 4TH  DOSE
  5. OPDIVO [Suspect]
     Active Substance: NIVOLUMAB
     Dosage: 5TH DOSE
     Dates: start: 20251126, end: 20251126

REACTIONS (2)
  - Metastatic gastric cancer [Unknown]
  - Full blood count decreased [Unknown]

NARRATIVE: CASE EVENT DATE: 20251102
